FAERS Safety Report 7413684-0 (Version None)
Quarter: 2011Q2

REPORT INFORMATION
  Report Type: 
  Country: None (occurrence: None)
  Receive Date: 20110413
  Receipt Date: 20101229
  Transmission Date: 20111010
  Serious: Yes (Death)
  Sender: FDA-Public Use
  Company Number: JP-ROCHE-736417

PATIENT
  Sex: Female
  Weight: 50 kg

DRUGS (27)
  1. TOCILIZUMAB [Suspect]
     Route: 041
     Dates: start: 20091016, end: 20091016
  2. TOCILIZUMAB [Suspect]
     Route: 041
     Dates: start: 20100319, end: 20100319
  3. TOCILIZUMAB [Suspect]
     Route: 041
     Dates: start: 20100416, end: 20100416
  4. BASEN [Concomitant]
     Dosage: DOSE FORM: PERORAL AGENT, DRUG NAME:BASEN OD(VOGLIBOSE)
     Route: 048
  5. TOCILIZUMAB [Suspect]
     Route: 041
     Dates: start: 20100709, end: 20100709
  6. PREDNISOLONE [Concomitant]
     Dosage: DOSE FORM: PERORAL AGENT
     Route: 048
     Dates: start: 20091016, end: 20100415
  7. FLURBIPROFEN [Concomitant]
     Dosage: DRUG REPORTED:ADOFEED(FLURBIPROFEN). FORM: TAPE, DOSAGE IS UNCERTAIN
     Route: 061
  8. LIPIDIL [Concomitant]
     Route: 048
  9. TOCILIZUMAB [Suspect]
     Route: 041
     Dates: start: 20091211, end: 20091211
  10. TOCILIZUMAB [Suspect]
     Route: 041
     Dates: start: 20100514, end: 20100514
  11. ULGUT [Concomitant]
     Route: 048
  12. TOCILIZUMAB [Suspect]
     Indication: RHEUMATOID ARTHRITIS
     Route: 041
     Dates: start: 20090728, end: 20090728
  13. PREDNISOLONE [Concomitant]
     Dosage: DOSE FORM: PERORAL AGENT
     Route: 048
     Dates: start: 20090917, end: 20091015
  14. PREDNISOLONE [Concomitant]
     Dosage: DOSE FORM: PERORAL AGENT
     Route: 048
     Dates: start: 20100806
  15. GASTER D [Concomitant]
     Dosage: FORM: PERORAL AGENT.
     Route: 048
  16. TOCILIZUMAB [Suspect]
     Route: 041
     Dates: start: 20090825, end: 20090825
  17. TOCILIZUMAB [Suspect]
     Route: 041
     Dates: start: 20091112, end: 20091112
  18. TOCILIZUMAB [Suspect]
     Route: 041
     Dates: start: 20100219, end: 20100219
  19. TOCILIZUMAB [Suspect]
     Route: 041
     Dates: start: 20100611, end: 20100611
  20. TOCILIZUMAB [Suspect]
     Route: 041
     Dates: start: 20100806, end: 20100806
  21. TOCILIZUMAB [Suspect]
     Dosage: ACTION TAKEN: DISCONTINUED.
     Route: 041
     Dates: start: 20100903, end: 20100903
  22. PREDNISOLONE [Concomitant]
     Dosage: DOSE FORM: PERORAL AGENT
     Route: 048
     Dates: start: 20100416, end: 20100805
  23. TAKEPRON [Concomitant]
     Dosage: FORM: PERORAL AGENT.
     Route: 048
     Dates: start: 20100930
  24. KETOPROFEN [Concomitant]
     Dosage: DRUG REPORTED:MOHRUS TAPE L(KETOPROFEN). FORM: TAPE, DOSAGE IS UNCERTAIN
     Route: 061
  25. TOCILIZUMAB [Suspect]
     Route: 041
     Dates: start: 20090917, end: 20090917
  26. PREDNISOLONE [Concomitant]
     Dosage: DOSE FORM: PERORAL AGENT
     Route: 048
     Dates: end: 20090916
  27. NORVASC [Concomitant]
     Dosage: DOSE FORM: PERORAL AGENT, DRUG NAME: NORVASC OD(AMLODIPINE BESILATE)
     Route: 048

REACTIONS (2)
  - HYDRONEPHROSIS [None]
  - GASTRIC CANCER [None]
